FAERS Safety Report 18236797 (Version 2)
Quarter: 2020Q4

REPORT INFORMATION
  Report Type: Spontaneous
  Country: IT (occurrence: IT)
  Receive Date: 20200907
  Receipt Date: 20201015
  Transmission Date: 20210113
  Serious: Yes (Death, Other)
  Sender: FDA-Public Use
  Company Number: IT-AUROBINDO-AUR-APL-2020-045680

PATIENT
  Age: 51 Year
  Sex: Male

DRUGS (9)
  1. CARBOPLATIN. [Suspect]
     Active Substance: CARBOPLATIN
     Indication: SALIVARY GLAND CANCER
     Dosage: UNK, EVERY WEEK
     Route: 065
  2. PACLITAXEL. [Suspect]
     Active Substance: PACLITAXEL
     Indication: SALIVARY GLAND CANCER
     Dosage: 80 MILLIGRAM/SQ. METER, EVERY WEEK
     Route: 065
  3. TRASTUZUMAB. [Suspect]
     Active Substance: TRASTUZUMAB
     Indication: SALIVARY GLAND CANCER
     Dosage: 6 MILLIGRAM/KILOGRAM ONCE IN SEVEN DAYS (3 WEEKLY)
     Route: 065
  4. VINORELBINE [Suspect]
     Active Substance: VINORELBINE TARTRATE
     Indication: METASTASES TO BONE
  5. TRASTUZUMAB. [Suspect]
     Active Substance: TRASTUZUMAB
     Indication: METASTASES TO BONE
     Dosage: 4 MILLIGRAM/KILOGRAM, EVERY WEEK (LOADING DOSE)
     Route: 065
  6. TRASTUZUMAB. [Suspect]
     Active Substance: TRASTUZUMAB
     Indication: METASTASES TO LIVER
     Dosage: 2 MILLIGRAM/KILOGRAM (MAINTENANCE DOSE)
     Route: 065
  7. TRASTUZUMAB. [Suspect]
     Active Substance: TRASTUZUMAB
     Dosage: 6 MILLIGRAM/KILOGRAM, CYCLICAL     (3-WEEKLY )
     Route: 065
  8. VINORELBINE [Suspect]
     Active Substance: VINORELBINE TARTRATE
     Indication: METASTASES TO LIVER
  9. VINORELBINE [Suspect]
     Active Substance: VINORELBINE TARTRATE
     Indication: SALIVARY GLAND CANCER
     Dosage: 25 MILLIGRAM/SQ. METER (DAYS 1 AND 8 OF A 21-DAY CYCLE)
     Route: 065

REACTIONS (7)
  - Death [Fatal]
  - Intentional product use issue [Unknown]
  - Ejection fraction decreased [Unknown]
  - Streptococcal endocarditis [Unknown]
  - Off label use [Unknown]
  - Product use in unapproved indication [Unknown]
  - Endocarditis enterococcal [Unknown]

NARRATIVE: CASE EVENT DATE: 202002
